FAERS Safety Report 10064622 (Version 3)
Quarter: 2014Q3

REPORT INFORMATION
  Report Type: Spontaneous
  Country: AU (occurrence: AU)
  Receive Date: 20140408
  Receipt Date: 20140711
  Transmission Date: 20150326
  Serious: Yes (Life-Threatening, Hospitalization)
  Sender: FDA-Public Use
  Company Number: AU-PFIZER INC-2014097252

PATIENT
  Sex: Male

DRUGS (3)
  1. QUETIAPINE FUMARATE. [Suspect]
     Active Substance: QUETIAPINE FUMARATE
     Dosage: 400 MG, DAILY
     Route: 064
  2. ELEVIT RDI [Concomitant]
     Dosage: UNK
     Route: 064
  3. PRISTIQ EXTENDED RELEASE [Suspect]
     Active Substance: DESVENLAFAXINE SUCCINATE
     Dosage: 100 MG, UNK
     Route: 064

REACTIONS (5)
  - Somnolence [Recovered/Resolved]
  - Maternal exposure during pregnancy [Recovered/Resolved]
  - Foetal distress syndrome [Recovered/Resolved]
  - Withdrawal syndrome [Recovered/Resolved]
  - Reflexes abnormal [Recovered/Resolved]

NARRATIVE: CASE EVENT DATE: 20120312
